FAERS Safety Report 7776856-1 (Version None)
Quarter: 2011Q3

REPORT INFORMATION
  Report Type: 
  Country: None (occurrence: None)
  Receive Date: 20110926
  Receipt Date: 20110913
  Transmission Date: 20111222
  Serious: Yes (Hospitalization)
  Sender: FDA-Public Use
  Company Number: JP-ELI_LILLY_AND_COMPANY-JP201105007494

PATIENT
  Age: 77 Year
  Sex: Female

DRUGS (1)
  1. FORTEO [Suspect]
     Dosage: UNK
     Route: 058
     Dates: start: 20110419, end: 20110912

REACTIONS (5)
  - HOSPITALISATION [None]
  - INJECTION SITE HAEMATOMA [None]
  - BONE DENSITY DECREASED [None]
  - SWELLING FACE [None]
  - INJECTION SITE ERYTHEMA [None]
